FAERS Safety Report 20759118 (Version 1)
Quarter: 2022Q2

REPORT INFORMATION
  Report Type: Spontaneous
  Country: US (occurrence: US)
  Receive Date: 20220427
  Receipt Date: 20220427
  Transmission Date: 20220720
  Serious: No
  Sender: FDA-Public Use
  Company Number: US-BioHaven Pharmaceuticals-2021BHV003155

PATIENT
  Age: 71 Year
  Sex: Male
  Weight: 73.548 kg

DRUGS (1)
  1. NURTEC ODT [Suspect]
     Active Substance: RIMEGEPANT SULFATE
     Indication: Migraine
     Dosage: 8 TABLETS, AS NEEDED // EVERY OTHER DAY/1 TAB E.O.D
     Route: 065
     Dates: start: 20211129, end: 20211227

REACTIONS (1)
  - Drug ineffective [Unknown]

NARRATIVE: CASE EVENT DATE: 20211129
